FAERS Safety Report 7075004-3 (Version None)
Quarter: 2010Q4

REPORT INFORMATION
  Report Type: 
  Country: None (occurrence: None)
  Receive Date: 20101029
  Receipt Date: 20100127
  Transmission Date: 20110411
  Serious: No
  Sender: FDA-Public Use
  Company Number: US-WYE-H13242710

PATIENT
  Age: 55 Year
  Sex: Male
  Weight: 95.34 kg

DRUGS (2)
  1. ADVIL PM [Suspect]
     Indication: INSOMNIA
     Dosage: 3-5 CAPLETS DAILY
     Route: 048
     Dates: start: 20100101
  2. ETHANOL [Concomitant]

REACTIONS (3)
  - GASTRIC HAEMORRHAGE [None]
  - OVERDOSE [None]
  - PROSTATIC SPECIFIC ANTIGEN INCREASED [None]
